FAERS Safety Report 8880061 (Version 4)
Quarter: 2013Q2

REPORT INFORMATION
  Report Type: Spontaneous
  Country: US (occurrence: US)
  Receive Date: 20121031
  Receipt Date: 20130626
  Transmission Date: 20140414
  Serious: No
  Sender: FDA-Public Use
  Company Number: US-VERTEX PHARMACEUTICAL INC.-AE-2012-008707

PATIENT
  Age: 15 Year
  Sex: Female
  Weight: 63 kg

DRUGS (4)
  1. KALYDECO [Suspect]
     Indication: CYSTIC FIBROSIS
     Dosage: 150 MG, QD
     Route: 048
     Dates: start: 20120220
  2. ALBUTEROL [Concomitant]
     Dosage: 1 QD
  3. PULMOZYME [Concomitant]
     Dosage: 1 QD
  4. CREON [Concomitant]
     Dosage: UNK

REACTIONS (3)
  - Cough [Recovered/Resolved]
  - Upper-airway cough syndrome [Recovered/Resolved]
  - Upper respiratory tract infection [Recovered/Resolved]
